FAERS Safety Report 20187195 (Version 1)
Quarter: 2021Q4

REPORT INFORMATION
  Report Type: Spontaneous
  Country: US (occurrence: US)
  Receive Date: 20211215
  Receipt Date: 20211215
  Transmission Date: 20220303
  Serious: No
  Sender: FDA-Public Use
  Company Number: US-JNJFOC-20211215665

PATIENT

DRUGS (1)
  1. MENS ROGAINE EXTRA STRENGTH [Suspect]
     Active Substance: MINOXIDIL
     Indication: Alopecia
     Route: 061
     Dates: end: 2021

REACTIONS (8)
  - Chest discomfort [Not Recovered/Not Resolved]
  - Muscle tightness [Not Recovered/Not Resolved]
  - Back pain [Not Recovered/Not Resolved]
  - Application site acne [Unknown]
  - Dandruff [Unknown]
  - Application site exfoliation [Unknown]
  - Palpitations [Unknown]
  - Chest pain [Not Recovered/Not Resolved]
